FAERS Safety Report 10190241 (Version 1)
Quarter: 2014Q2

REPORT INFORMATION
  Report Type: Spontaneous
  Country: FR (occurrence: FR)
  Receive Date: 20140522
  Receipt Date: 20140522
  Transmission Date: 20141212
  Serious: Yes (Life-Threatening)
  Sender: FDA-Public Use
  Company Number: FR-ASTRAZENECA-2014SE34862

PATIENT
  Age: 78 Year
  Sex: Female

DRUGS (9)
  1. INEXIUM [Suspect]
     Route: 048
     Dates: start: 20140227
  2. LEVOFLOXACINE [Suspect]
     Route: 048
  3. DOMPERIDONE [Suspect]
     Route: 048
     Dates: start: 20140227
  4. SEROPLEX [Suspect]
     Route: 048
     Dates: start: 20140227
  5. PLAVIX [Concomitant]
     Route: 048
  6. LEVOTHYROX [Concomitant]
     Route: 048
  7. AMLOR [Concomitant]
     Route: 048
  8. LOVENOX [Concomitant]
     Route: 058
  9. ALPRAZOLAM [Concomitant]
     Route: 048

REACTIONS (1)
  - Status epilepticus [Recovering/Resolving]
